FAERS Safety Report 10946484 (Version 1)
Quarter: 2015Q1

REPORT INFORMATION
  Report Type: Report from Study
  Country: US (occurrence: US)
  Receive Date: 20150323
  Receipt Date: 20150323
  Transmission Date: 20150721
  Serious: Yes (Hospitalization)
  Sender: FDA-Public Use
  Company Number: US-ROCHE-1479357

PATIENT
  Age: 30 Year
  Sex: Female
  Weight: 118 kg

DRUGS (6)
  1. TRASTUZUMAB [Suspect]
     Active Substance: TRASTUZUMAB
     Dosage: OVER 30-60 MIN
     Route: 042
  2. TRASTUZUMAB [Suspect]
     Active Substance: TRASTUZUMAB
     Indication: INFLAMMATORY CARCINOMA OF THE BREAST
     Dosage: CYCLE 1: OVER 90 MIN ON DAY 1
     Route: 042
     Dates: start: 20140514
  3. CARBOPLATIN. [Suspect]
     Active Substance: CARBOPLATIN
     Indication: INFLAMMATORY CARCINOMA OF THE BREAST
     Dosage: AUC=6 MG/ML/MIN IV OVER 30-60 MIN
     Route: 042
     Dates: start: 20140514
  4. PERTUZUMAB [Suspect]
     Active Substance: PERTUZUMAB
     Indication: INFLAMMATORY CARCINOMA OF THE BREAST
     Dosage: CYCLE 1: OVER 60 MIN ON DAY 1
     Route: 042
     Dates: start: 20140514
  5. PERTUZUMAB [Suspect]
     Active Substance: PERTUZUMAB
     Dosage: CYCLE 2-6: OVER 30-60 MIN
     Route: 042
  6. DOCETAXEL. [Suspect]
     Active Substance: DOCETAXEL
     Indication: INFLAMMATORY CARCINOMA OF THE BREAST
     Dosage: OVER 60 MIN
     Route: 042
     Dates: start: 20140514

REACTIONS (4)
  - Nausea [Recovering/Resolving]
  - Vomiting [Recovering/Resolving]
  - Cystitis [Recovering/Resolving]
  - Diarrhoea [Recovering/Resolving]

NARRATIVE: CASE EVENT DATE: 20140517
